FAERS Safety Report 9334527 (Version 1)
Quarter: 2013Q2

REPORT INFORMATION
  Report Type: Spontaneous
  Country: US (occurrence: US)
  Receive Date: 20130606
  Receipt Date: 20130606
  Transmission Date: 20140414
  Serious: No
  Sender: FDA-Public Use
  Company Number: US-AMGEN-USASP2013031971

PATIENT
  Age: 78 Year
  Sex: Female

DRUGS (4)
  1. PROLIA [Suspect]
     Indication: OSTEOPOROSIS POSTMENOPAUSAL
     Dosage: UNK
     Dates: start: 201110
  2. THYROID [Concomitant]
  3. VITAMIN D                          /00107901/ [Concomitant]
     Dosage: 5000 UNK, QD
  4. NIACIN [Concomitant]

REACTIONS (3)
  - Gait disturbance [Unknown]
  - Limb discomfort [Unknown]
  - Muscular weakness [Unknown]
